FAERS Safety Report 12309612 (Version 1)
Quarter: 2016Q2

REPORT INFORMATION
  Report Type: Spontaneous
  Country: US (occurrence: None)
  Receive Date: 20160426
  Receipt Date: 20160426
  Transmission Date: 20160815
  Serious: Yes (Hospitalization)
  Sender: FDA-Public Use
  Company Number: None

PATIENT
  Age: 33 Year
  Sex: Male

DRUGS (9)
  1. HUMALOG [Concomitant]
     Active Substance: INSULIN LISPRO
  2. CARVEDILOL. [Concomitant]
     Active Substance: CARVEDILOL
  3. LISINOPRIL. [Concomitant]
     Active Substance: LISINOPRIL
  4. TOBRAMYCIN 300MG/5ML [Suspect]
     Active Substance: TOBRAMYCIN
     Indication: CYSTIC FIBROSIS
     Dosage: HASN^T STARTED
     Route: 055
  5. LANTUS [Concomitant]
     Active Substance: INSULIN GLARGINE
  6. OXCONTIN [Concomitant]
  7. OXYCODONE [Concomitant]
     Active Substance: OXYCODONE
  8. PULMOZYME [Concomitant]
     Active Substance: DORNASE ALFA
  9. CREON [Concomitant]
     Active Substance: PANCRELIPASE AMYLASE\PANCRELIPASE LIPASE\PANCRELIPASE PROTEASE

REACTIONS (2)
  - Renal pain [None]
  - Dyspnoea [None]

NARRATIVE: CASE EVENT DATE: 20160425
